FAERS Safety Report 9027247 (Version 2)
Quarter: 2013Q1

REPORT INFORMATION
  Report Type: Report from Study
  Country: NL (occurrence: NL)
  Receive Date: 20130123
  Receipt Date: 20130215
  Transmission Date: 20140127
  Serious: Yes (Hospitalization)
  Sender: FDA-Public Use
  Company Number: NL-COVIDIEN/TYCO HEALTHCARE/MALLINCKRODT-T201300159

PATIENT
  Age: 39 Year
  Sex: Female

DRUGS (9)
  1. EXALGO EXTENDED RELEASE [Suspect]
     Indication: CANCER PAIN
     Dosage: 64 MG, IN 1 DAY
     Route: 048
     Dates: start: 20000417
  2. ANASTROZOLE [Concomitant]
     Indication: BREAST CANCER
     Dosage: 1 MG, IN 1 DAY
     Dates: start: 20000309
  3. TROPISETRAN [Concomitant]
     Indication: NAUSEA
     Dosage: 5 MG,  IN  1 DAY
     Dates: start: 20000504
  4. LORAZEPAM [Concomitant]
     Indication: SLEEP DISORDER
     Dosage: 2 MG,  IN 1 DAY
     Dates: start: 19990506
  5. PANTOPRAZOL [Concomitant]
     Indication: GASTROINTESTINAL DISORDER
     Dosage: 80 MG, IN 1 DAY
  6. DICLOFENAC [Concomitant]
     Indication: PAIN
     Dosage: 150 MG, IN 1 DAY
     Dates: start: 20000309
  7. LACTULOSE [Concomitant]
     Dosage: 15 ML, IN 1 DAY
     Dates: start: 19990506
  8. DEXAMETHASON                       /00016001/ [Concomitant]
     Indication: PAIN
     Dosage: 4 MG, IN 1 DAY
     Dates: start: 20000331
  9. TEMAZEPAM [Concomitant]
     Indication: SLEEP DISORDER
     Dosage: 10 MG, IN 1 DAY
     Dates: start: 20000331

REACTIONS (1)
  - Cancer pain [Recovered/Resolved]
